FAERS Safety Report 4662520-4 (Version None)
Quarter: 2005Q2

REPORT INFORMATION
  Report Type: 
  Country: None (occurrence: None)
  Receive Date: 20050516
  Receipt Date: 20050427
  Transmission Date: 20051028
  Serious: Yes (Life-Threatening, Hospitalization)
  Sender: FDA-Public Use
  Company Number: GB-ROCHE-403200

PATIENT
  Age: 44 Year
  Sex: Female

DRUGS (35)
  1. DACLIZUMAB [Suspect]
     Route: 042
     Dates: start: 20050415, end: 20050415
  2. DACLIZUMAB [Suspect]
     Route: 042
     Dates: start: 20050422, end: 20050422
  3. MYCOPHENOLATE MOFETIL [Suspect]
     Route: 042
     Dates: start: 20050415, end: 20050415
  4. MYCOPHENOLATE MOFETIL [Suspect]
     Route: 042
     Dates: start: 20050416, end: 20050418
  5. MYCOPHENOLATE MOFETIL [Suspect]
     Route: 042
     Dates: start: 20050419, end: 20050419
  6. MYCOPHENOLATE MOFETIL [Suspect]
     Route: 048
     Dates: start: 20050420, end: 20050423
  7. MYCOPHENOLATE MOFETIL [Suspect]
     Route: 048
     Dates: start: 20050424, end: 20050424
  8. MYCOPHENOLATE MOFETIL [Suspect]
     Route: 048
     Dates: start: 20050426, end: 20050426
  9. MYCOPHENOLATE MOFETIL [Suspect]
     Route: 048
     Dates: start: 20050427
  10. TACROLIMUS [Suspect]
     Dosage: DOSES ADJUSTED TO REACH PREDEFINED TARGET LEVELS.
     Route: 048
     Dates: start: 20050420, end: 20050423
  11. TACROLIMUS [Suspect]
     Dosage: ADVERSE EVENT/TOXICITY
     Route: 048
     Dates: start: 20050424, end: 20050424
  12. TACROLIMUS [Suspect]
     Route: 048
     Dates: start: 20050426, end: 20050426
  13. TACROLIMUS [Suspect]
     Route: 048
     Dates: start: 20050429
  14. HYDROCORTISONE [Suspect]
     Dosage: DOSES TAPERED ACCORDING TO LOCAL PROTOCOL.
     Route: 065
     Dates: start: 20050415
  15. PREDNISOLONE [Suspect]
     Dosage: DOSES TAPERED ACCORDING TO LOCAL PROTOCOL.
     Route: 065
     Dates: start: 20050418, end: 20050423
  16. PREDNISOLONE [Suspect]
     Dosage: ADVERSE EVENT/TOXICITY
     Route: 065
     Dates: start: 20050424, end: 20050424
  17. PREDNISOLONE [Suspect]
     Dosage: ADVERSE EVENT/TOXICITY
     Route: 065
     Dates: start: 20050426, end: 20050426
  18. PREDNISOLONE [Suspect]
     Dosage: TAPERED ACCORDING TO LOCAL PROTOCOL
     Route: 065
     Dates: start: 20050427
  19. TAZOCIN [Concomitant]
     Indication: ANTIBIOTIC LEVEL
     Dates: start: 20050415
  20. FLUCONAZOLE [Concomitant]
     Indication: LOCAL ANTIFUNGAL TREATMENT
     Dates: start: 20050415
  21. CALCIUM CHLORIDE [Concomitant]
     Indication: UNEVALUABLE EVENT
     Dates: start: 20050415
  22. POTASSIUM CHLORIDE [Concomitant]
     Indication: UNEVALUABLE EVENT
  23. ALFENTANIL [Concomitant]
     Dates: start: 20050415, end: 20050415
  24. PROPOFOL [Concomitant]
     Indication: ANAESTHESIA
     Dates: start: 20050415, end: 20050415
  25. TRACRIUM [Concomitant]
     Dates: start: 20050415, end: 20050415
  26. NORADRENALINE [Concomitant]
     Dates: start: 20050415, end: 20050415
  27. TRASYLOL [Concomitant]
     Dates: start: 20050415, end: 20050415
  28. MORPHINE [Concomitant]
     Dates: start: 20050415, end: 20050421
  29. MEROPENEM [Concomitant]
     Indication: ANTIBIOTIC LEVEL
     Dates: start: 20050501
  30. VANCOMYCIN [Concomitant]
     Dates: start: 20050504
  31. VALGANCICLOVIR [Concomitant]
     Indication: SYSTEMIC ANTIVIRAL TREATMENT
     Dates: start: 20050504
  32. ASPIRIN [Concomitant]
     Dates: start: 20050427
  33. COTRIM [Concomitant]
     Indication: ANTIBIOTIC LEVEL
     Dates: start: 20050427
  34. CYCLIZINE [Concomitant]
     Dates: start: 20050504
  35. NYSTATIN [Concomitant]
     Dates: start: 20050426

REACTIONS (12)
  - ASCITES [None]
  - BLOOD ALBUMIN DECREASED [None]
  - CULTURE POSITIVE [None]
  - ESCHERICHIA INFECTION [None]
  - GASTROINTESTINAL HAEMORRHAGE [None]
  - LACERATION [None]
  - OEDEMA PERIPHERAL [None]
  - PLEURAL EFFUSION [None]
  - RENAL IMPAIRMENT [None]
  - SMALL INTESTINAL HAEMORRHAGE [None]
  - WHITE BLOOD CELL COUNT INCREASED [None]
  - WOUND SECRETION [None]
